FAERS Safety Report 6845639-9 (Version None)
Quarter: 2010Q3

REPORT INFORMATION
  Report Type: 
  Country: None (occurrence: None)
  Receive Date: 20100715
  Receipt Date: 20070827
  Transmission Date: 20110219
  Serious: No
  Sender: FDA-Public Use
  Company Number: US-PFIZER INC-2007072792

PATIENT
  Sex: Female
  Weight: 77.3 kg

DRUGS (5)
  1. CHANTIX [Suspect]
     Indication: SMOKING CESSATION THERAPY
     Dates: start: 20070816
  2. LOVASTATIN [Concomitant]
  3. BLACK COHOSH [Concomitant]
  4. FISH OIL [Concomitant]
  5. AMBIEN [Concomitant]

REACTIONS (3)
  - ABNORMAL DREAMS [None]
  - HOT FLUSH [None]
  - SLEEP DISORDER [None]
